FAERS Safety Report 5063402-9 (Version None)
Quarter: 2006Q3

REPORT INFORMATION
  Report Type: 
  Country: None (occurrence: None)
  Receive Date: 20060727
  Receipt Date: 20060720
  Transmission Date: 20061208
  Serious: Yes (Hospitalization)
  Sender: FDA-Public Use
  Company Number: US-KINGPHARMUSA00001-K200600939

PATIENT
  Age: 47 Year
  Sex: Female

DRUGS (12)
  1. ALTACE [Suspect]
     Route: 048
  2. LASILIX [Suspect]
     Route: 048
  3. ENDOXAN [Suspect]
     Dosage: 1 G, QD
     Route: 042
     Dates: start: 20060620, end: 20060620
  4. DOPAMINE [Concomitant]
     Route: 042
  5. DOBUTAMINE HCL [Concomitant]
     Route: 042
  6. SOLU-MEDROL [Concomitant]
     Route: 042
  7. ALDACTONE [Concomitant]
     Route: 048
  8. MESTINON [Concomitant]
     Route: 048
  9. GUTRON [Concomitant]
  10. HEPARIN [Concomitant]
     Dosage: UNK, UNK
     Route: 042
  11. ONDANSETRON HCL [Concomitant]
  12. MESNA [Concomitant]

REACTIONS (3)
  - EJECTION FRACTION DECREASED [None]
  - HEPATITIS [None]
  - TRANSAMINASES INCREASED [None]
